FAERS Safety Report 25150551 (Version 3)
Quarter: 2025Q2

REPORT INFORMATION
  Report Type: Spontaneous
  Country: US (occurrence: US)
  Receive Date: 20250402
  Receipt Date: 20250505
  Transmission Date: 20250717
  Serious: No
  Sender: PFIZER
  Company Number: US-PFIZER INC-202500068754

PATIENT
  Age: 14 Year
  Sex: Female
  Weight: 42.64 kg

DRUGS (1)
  1. GENOTROPIN [Suspect]
     Active Substance: SOMATROPIN

REACTIONS (4)
  - Drug dose omission by device [Unknown]
  - Drug administered in wrong device [Unknown]
  - Device information output issue [Unknown]
  - Device breakage [Unknown]
